FAERS Safety Report 8908925 (Version 1)
Quarter: 2012Q4

REPORT INFORMATION
  Report Type: 
  Country: US (occurrence: US)
  Receive Date: 20121114
  Receipt Date: 20121114
  Transmission Date: 20130627
  Serious: No
  Sender: FDA-Public Use
  Company Number: US-ASTRAZENECA-2012SE83856

PATIENT
  Age: 48 Year
  Sex: Female

DRUGS (1)
  1. SEROQUEL [Suspect]
     Route: 048

REACTIONS (7)
  - Choking [Unknown]
  - Tooth disorder [Unknown]
  - Gingival injury [Unknown]
  - Aphagia [Unknown]
  - Cough [Unknown]
  - Insomnia [Unknown]
  - Vomiting [Unknown]
